FAERS Safety Report 17308236 (Version 1)
Quarter: 2020Q1

REPORT INFORMATION
  Report Type: Spontaneous
  Country: US (occurrence: US)
  Receive Date: 20200122
  Receipt Date: 20200122
  Transmission Date: 20200409
  Serious: Yes (Other)
  Sender: FDA-Public Use
  Company Number: None

PATIENT
  Age: 8 Year
  Sex: Female
  Weight: 27 kg

DRUGS (2)
  1. MELATONIN [Concomitant]
     Active Substance: MELATONIN
  2. TAMIFLU [Suspect]
     Active Substance: OSELTAMIVIR PHOSPHATE
     Indication: INFLUENZA VIRUS TEST POSITIVE
     Dates: start: 20200113, end: 20200116

REACTIONS (5)
  - Psychotic disorder [None]
  - Delusion [None]
  - Delirium [None]
  - Insomnia [None]
  - Panic reaction [None]

NARRATIVE: CASE EVENT DATE: 20200116
